FAERS Safety Report 21858835 (Version 2)
Quarter: 2023Q1

REPORT INFORMATION
  Report Type: Spontaneous
  Country: TW (occurrence: TW)
  Receive Date: 20230113
  Receipt Date: 20230118
  Transmission Date: 20230418
  Serious: Yes (Other)
  Sender: FDA-Public Use
  Company Number: TW-009507513-2301TWN002009

PATIENT
  Age: 60 Year
  Sex: Male

DRUGS (6)
  1. KEYTRUDA [Suspect]
     Active Substance: PEMBROLIZUMAB
     Indication: Oesophageal squamous cell carcinoma
     Dosage: 4 CYCLES
     Dates: start: 2021
  2. KEYTRUDA [Suspect]
     Active Substance: PEMBROLIZUMAB
     Dosage: MAINTENANCE
  3. PACLITAXEL [Suspect]
     Active Substance: PACLITAXEL
     Indication: Oesophageal squamous cell carcinoma
     Dosage: 4 CYCLES
     Dates: start: 2021
  4. CISPLATIN [Suspect]
     Active Substance: CISPLATIN
     Indication: Oesophageal squamous cell carcinoma
     Dosage: 4 CYCLES
     Dates: start: 2021
  5. FLUOROURACIL SODIUM [Suspect]
     Active Substance: FLUOROURACIL SODIUM
     Indication: Oesophageal squamous cell carcinoma
     Dosage: 4 CYCLES
     Dates: start: 2021
  6. LEUCOVORIN [Suspect]
     Active Substance: LEUCOVORIN
     Indication: Oesophageal squamous cell carcinoma
     Dosage: 4 CYCLES
     Dates: start: 2021

REACTIONS (8)
  - Neutropenia [Unknown]
  - Hypothyroidism [Unknown]
  - Weight increased [Unknown]
  - Hair colour changes [Unknown]
  - Anaemia [Unknown]
  - Nausea [Unknown]
  - Fatigue [Unknown]
  - Product use issue [Unknown]

NARRATIVE: CASE EVENT DATE: 20210101
